FAERS Safety Report 5365343-6 (Version None)
Quarter: 2007Q2

REPORT INFORMATION
  Report Type: 
  Country: None (occurrence: None)
  Receive Date: 20070530
  Receipt Date: 20070124
  Transmission Date: 20071010
  Serious: No
  Sender: FDA-Public Use
  Company Number: 2006PV006475

PATIENT
  Age: 62 Year
  Sex: Female

DRUGS (8)
  1. BYETTA [Suspect]
     Indication: DIABETES MELLITUS NON-INSULIN-DEPENDENT
     Dosage: 5 MCG; BID; SC, 10 MCG; BID; SC, 5 MCG; BID; SC, 10 MCG; SC, 5 MCG; SC, 10 MCG; SC, 10 MCG; BID; SC
     Route: 058
     Dates: start: 20051202, end: 20051231
  2. BYETTA [Suspect]
     Indication: DIABETES MELLITUS NON-INSULIN-DEPENDENT
     Dosage: 5 MCG; BID; SC, 10 MCG; BID; SC, 5 MCG; BID; SC, 10 MCG; SC, 5 MCG; SC, 10 MCG; SC, 10 MCG; BID; SC
     Route: 058
     Dates: start: 20060101, end: 20060101
  3. BYETTA [Suspect]
     Indication: DIABETES MELLITUS NON-INSULIN-DEPENDENT
     Dosage: 5 MCG; BID; SC, 10 MCG; BID; SC, 5 MCG; BID; SC, 10 MCG; SC, 5 MCG; SC, 10 MCG; SC, 10 MCG; BID; SC
     Route: 058
     Dates: start: 20060101
  4. BYETTA [Suspect]
     Indication: DIABETES MELLITUS NON-INSULIN-DEPENDENT
     Dosage: 5 MCG; BID; SC, 10 MCG; BID; SC, 5 MCG; BID; SC, 10 MCG; SC, 5 MCG; SC, 10 MCG; SC, 10 MCG; BID; SC
     Route: 058
     Dates: start: 20070101
  5. BYETTA [Suspect]
  6. BYETTA [Suspect]
  7. GLIMEPIRIDE [Concomitant]
  8. SYNTHROID [Concomitant]

REACTIONS (9)
  - ABDOMINAL DISTENSION [None]
  - BLOOD GLUCOSE INCREASED [None]
  - CONFUSIONAL STATE [None]
  - CONSTIPATION [None]
  - DECREASED APPETITE [None]
  - INCORRECT DOSE ADMINISTERED [None]
  - MALAISE [None]
  - NAUSEA [None]
  - WEIGHT DECREASED [None]
